FAERS Safety Report 9832998 (Version 1)
Quarter: 2014Q1

REPORT INFORMATION
  Report Type: Spontaneous
  Country: US (occurrence: US)
  Receive Date: 20140121
  Receipt Date: 20140121
  Transmission Date: 20141002
  Serious: No
  Sender: FDA-Public Use
  Company Number: US-009507513-1401USA002506

PATIENT
  Sex: Male

DRUGS (3)
  1. PROVENTIL [Suspect]
     Indication: WHEEZING
     Dosage: 1 PUFF EVERY 4 HOURS AS NEEDED
     Dates: start: 20131223
  2. SIMVASTATIN TABLETS, USP [Concomitant]
  3. LOSARTAN POTASSIUM TABLETS [Concomitant]

REACTIONS (2)
  - Drug dose omission [Unknown]
  - Product quality issue [Unknown]
